FAERS Safety Report 5262158-4 (Version None)
Quarter: 2007Q1

REPORT INFORMATION
  Report Type: 
  Country: None (occurrence: None)
  Receive Date: 20070308
  Receipt Date: 20070226
  Transmission Date: 20070707
  Serious: Yes (Other)
  Sender: FDA-Public Use
  Company Number: 2007SP003689

PATIENT
  Age: 51 Year
  Sex: Female

DRUGS (1)
  1. DESLORATADINE [Suspect]

REACTIONS (1)
  - HYPERTENSION [None]
